FAERS Safety Report 8418733-9 (Version None)
Quarter: 2012Q2

REPORT INFORMATION
  Report Type: 
  Country: None (occurrence: None)
  Receive Date: 20120607
  Receipt Date: 20120529
  Transmission Date: 20120825
  Serious: No
  Sender: FDA-Public Use
  Company Number: US-ASTRAZENECA-2012SE35133

PATIENT
  Sex: Female

DRUGS (3)
  1. NEXIUM [Suspect]
     Indication: GASTROOESOPHAGEAL REFLUX DISEASE
     Route: 048
  2. NEXIUM [Suspect]
     Indication: GASTRITIS
     Route: 048
  3. PRILOSEC [Suspect]
     Route: 048

REACTIONS (9)
  - DRUG INEFFECTIVE [None]
  - GASTRITIS [None]
  - DYSPEPSIA [None]
  - CHEST DISCOMFORT [None]
  - EPIGASTRIC DISCOMFORT [None]
  - OFF LABEL USE [None]
  - ERUCTATION [None]
  - ADVERSE EVENT [None]
  - NAUSEA [None]
